APPROVED DRUG PRODUCT: PROCAINAMIDE HYDROCHLORIDE
Active Ingredient: PROCAINAMIDE HYDROCHLORIDE
Strength: 100MG/ML
Dosage Form/Route: INJECTABLE;INJECTION
Application: A206332 | Product #001 | TE Code: AP
Applicant: NEXUS PHARMACEUTICALS LLC
Approved: Oct 13, 2017 | RLD: No | RS: No | Type: RX